FAERS Safety Report 18705022 (Version 2)
Quarter: 2021Q1

REPORT INFORMATION
  Report Type: Spontaneous
  Country: US (occurrence: US)
  Receive Date: 20210106
  Receipt Date: 20210118
  Transmission Date: 20210419
  Serious: No
  Sender: FDA-Public Use
  Company Number: US-BRISTOL-MYERS SQUIBB COMPANY-BMS-2021-000236

PATIENT
  Sex: Female
  Weight: 21.8 kg

DRUGS (5)
  1. WARFARIN SODIUM. [Suspect]
     Active Substance: WARFARIN SODIUM
     Indication: PRODUCT USED FOR UNKNOWN INDICATION
     Dosage: UNK
     Route: 065
  2. LETAIRIS [Concomitant]
     Active Substance: AMBRISENTAN
     Indication: PRODUCT USED FOR UNKNOWN INDICATION
     Dosage: UNK
     Route: 065
  3. REMODULIN [Suspect]
     Active Substance: TREPROSTINIL
     Indication: PULMONARY ARTERIAL HYPERTENSION
     Dosage: 0.1 MICROGRAM/KILOGRAM
     Route: 058
     Dates: start: 20190513
  4. REMODULIN [Suspect]
     Active Substance: TREPROSTINIL
     Dosage: 0.09 MICROGRAM/KILOGRAM
     Route: 058
  5. TADALAFIL. [Concomitant]
     Active Substance: TADALAFIL
     Indication: PRODUCT USED FOR UNKNOWN INDICATION
     Dosage: UNK
     Route: 065

REACTIONS (6)
  - Infusion site haemorrhage [Unknown]
  - Malaise [Unknown]
  - Dermatitis contact [Not Recovered/Not Resolved]
  - Fatigue [Unknown]
  - Infusion site extravasation [Unknown]
  - Device malfunction [Unknown]
